FAERS Safety Report 6101830-0 (Version None)
Quarter: 2009Q1

REPORT INFORMATION
  Report Type: 
  Country: None (occurrence: None)
  Receive Date: 20090303
  Receipt Date: 20090303
  Transmission Date: 20090719
  Serious: Yes (Hospitalization, Other)
  Sender: FDA-Public Use
  Company Number: None

PATIENT
  Age: 40 Year
  Sex: Male
  Weight: 83.9154 kg

DRUGS (2)
  1. CLEOCIN [Suspect]
     Indication: INFECTION PROPHYLAXIS
     Dosage: 300MG CAPSULE 1 TIMES DAILY PO
     Route: 048
     Dates: start: 20090228, end: 20090228
  2. IBUPROFEN [Suspect]
     Indication: PROCEDURAL PAIN
     Dosage: 600MG CAPSULE 3 TIMES DAILY PO
     Route: 048
     Dates: start: 20090228, end: 20090228

REACTIONS (1)
  - DRUG HYPERSENSITIVITY [None]
